FAERS Safety Report 5571388-3 (Version None)
Quarter: 2007Q4

REPORT INFORMATION
  Report Type: 
  Country: None (occurrence: None)
  Receive Date: 20071221
  Receipt Date: 20071102
  Transmission Date: 20080405
  Serious: No
  Sender: FDA-Public Use
  Company Number: A0683601A

PATIENT
  Age: 48 Year
  Sex: Male
  Weight: 70.5 kg

DRUGS (1)
  1. FLUTICASONE PROPIONATE [Suspect]
     Dosage: 4SPR PER DAY
     Route: 045
     Dates: start: 20070801

REACTIONS (2)
  - PHARMACEUTICAL PRODUCT COMPLAINT [None]
  - POOR QUALITY SLEEP [None]
